FAERS Safety Report 10522376 (Version 2)
Quarter: 2014Q4

REPORT INFORMATION
  Report Type: Spontaneous
  Country: US (occurrence: None)
  Receive Date: 20141010
  Receipt Date: 20141211
  Transmission Date: 20150528
  Serious: Yes (Death, Hospitalization)
  Sender: FDA-Public Use
  Company Number: AMAG201400370

PATIENT
  Age: 82 Year
  Sex: Female
  Weight: 80.9 kg

DRUGS (20)
  1. LASIX [Concomitant]
     Active Substance: FUROSEMIDE
  2. METFORMIN [Concomitant]
     Active Substance: METFORMIN HYDROCHLORIDE
  3. CENTRUM (MINERALS NOS, VITAMINS NOS) [Concomitant]
  4. THERAGRAN-M (MINERALS NOS, VITAMINS NOS) [Concomitant]
  5. FERAHEME [Suspect]
     Active Substance: FERUMOXYTOL NON-STOICHIOMETRIC MAGNETITE
     Indication: IRON DEFICIENCY ANAEMIA
     Dosage: SINGLE IV PUSH
     Route: 042
     Dates: start: 20141003, end: 20141003
  6. VICTOZA [Concomitant]
     Active Substance: LIRAGLUTIDE
  7. NOVOLOG [Concomitant]
     Active Substance: INSULIN ASPART
  8. FERAHEME [Suspect]
     Active Substance: FERUMOXYTOL NON-STOICHIOMETRIC MAGNETITE
     Indication: CHRONIC KIDNEY DISEASE
     Dosage: SINGLE IV PUSH
     Route: 042
     Dates: start: 20141003, end: 20141003
  9. DIGOXIN (DIGOXIN) [Concomitant]
     Active Substance: DIGOXIN
  10. IRON COMPOUND (IRON) [Concomitant]
  11. METOPROLOL TARTRATE (METOPROLOL TARTRATE) [Concomitant]
  12. PROTONIX [Concomitant]
     Active Substance: PANTOPRAZOLE SODIUM
  13. FERROUS SULFATE [Concomitant]
     Active Substance: FERROUS SULFATE\FERROUS SULFATE, DRIED
  14. LANTUS [Concomitant]
     Active Substance: INSULIN GLARGINE
  15. METOPROLOL SUCCINATE (METOPROLOL SUCCINATE) [Concomitant]
     Active Substance: METOPROLOL SUCCINATE
  16. PRAVACHOL (PRAVASTATIN SODIUM) [Concomitant]
  17. COUMADIN (COUMARIN) [Concomitant]
  18. CYMBALTA [Concomitant]
     Active Substance: DULOXETINE HYDROCHLORIDE
  19. LISINOPRIL (LISINOPRIL) [Concomitant]
     Active Substance: LISINOPRIL
  20. PLAVIX (CLOPIDOGREL BISULFATE) [Concomitant]

REACTIONS (16)
  - Anaphylactic reaction [None]
  - Cardio-respiratory arrest [None]
  - Sinus tachycardia [None]
  - Eye haemorrhage [None]
  - Pallor [None]
  - Unresponsive to stimuli [None]
  - Rhonchi [None]
  - Ventricular hypertrophy [None]
  - Seizure [None]
  - Supraventricular tachycardia [None]
  - Pneumonia aspiration [None]
  - Conjunctival haemorrhage [None]
  - Atelectasis [None]
  - Eye swelling [None]
  - Acute myocardial infarction [None]
  - Hyperglycaemia [None]

NARRATIVE: CASE EVENT DATE: 20141003
